FAERS Safety Report 7660068-6 (Version None)
Quarter: 2011Q3

REPORT INFORMATION
  Report Type: 
  Country: None (occurrence: None)
  Receive Date: 20110805
  Receipt Date: 20110804
  Transmission Date: 20111222
  Serious: No
  Sender: FDA-Public Use
  Company Number: US-PFIZER INC-2011179219

PATIENT
  Sex: Male
  Weight: 61.678 kg

DRUGS (5)
  1. CHANTIX [Suspect]
     Indication: SMOKING CESSATION THERAPY
     Dosage: 0.5 MG, 1X/DAY
     Route: 048
     Dates: start: 20060101, end: 20060101
  2. ACETYLSALICYLIC ACID [Concomitant]
     Dosage: UNK
  3. CARDIZEM CD [Concomitant]
     Dosage: UNK
  4. CHANTIX [Suspect]
     Dosage: UNK
     Dates: start: 20060101, end: 20060101
  5. LIPITOR [Concomitant]
     Dosage: UNK

REACTIONS (3)
  - WEIGHT DECREASED [None]
  - ABDOMINAL DISCOMFORT [None]
  - DECREASED APPETITE [None]
